FAERS Safety Report 18793598 (Version 1)
Quarter: 2021Q1

REPORT INFORMATION
  Report Type: Spontaneous
  Country: US (occurrence: US)
  Receive Date: 20210127
  Receipt Date: 20210127
  Transmission Date: 20210419
  Serious: Yes (Other)
  Sender: FDA-Public Use
  Company Number: US-009507513-2101USA011639

PATIENT
  Age: 28 Year
  Sex: Female

DRUGS (1)
  1. NEXPLANON [Suspect]
     Active Substance: ETONOGESTREL
     Indication: CONTRACEPTION
     Dosage: UNK
     Route: 023
     Dates: start: 201801

REACTIONS (3)
  - Incorrect product administration duration [Unknown]
  - Device dislocation [Not Recovered/Not Resolved]
  - Muscle twitching [Unknown]

NARRATIVE: CASE EVENT DATE: 20210122
